FAERS Safety Report 13110487 (Version 1)
Quarter: 2017Q1

REPORT INFORMATION
  Report Type: Spontaneous
  Country: US (occurrence: US)
  Receive Date: 20170112
  Receipt Date: 20170112
  Transmission Date: 20170428
  Serious: No
  Sender: FDA-Public Use
  Company Number: US-ROCHE-GNE309472

PATIENT
  Age: 78 Year
  Sex: Male

DRUGS (1)
  1. CATHFLO ACTIVASE [Suspect]
     Active Substance: ALTEPLASE
     Indication: DEVICE OCCLUSION
     Dosage: 3 MG, UNK
     Route: 050

REACTIONS (3)
  - Haemorrhage [None]
  - Gastric ulcer [Unknown]
  - Drug effect decreased [None]
